FAERS Safety Report 6742678-3 (Version None)
Quarter: 2010Q2

REPORT INFORMATION
  Report Type: 
  Country: None (occurrence: None)
  Receive Date: 20100526
  Receipt Date: 20091109
  Transmission Date: 20101027
  Serious: No
  Sender: FDA-Public Use
  Company Number: US-ABBOTT-09P-163-0608074-00

PATIENT
  Sex: Female
  Weight: 72.186 kg

DRUGS (8)
  1. ZEMPLAR [Suspect]
     Indication: NEPHRECTOMY
     Route: 048
  2. ZEMPLAR [Suspect]
     Indication: VITAMIN D DECREASED
  3. ZEMPLAR [Suspect]
     Indication: SINGLE FUNCTIONAL KIDNEY
  4. AMLODIPINE [Concomitant]
     Indication: DRUG USE FOR UNKNOWN INDICATION
  5. LISINOPRIL [Concomitant]
     Indication: HYPERTENSION
  6. UNKNOWN WATER PILL [Concomitant]
     Indication: DRUG USE FOR UNKNOWN INDICATION
  7. ATENOLOL [Concomitant]
     Indication: HYPERTENSION
  8. VITAMIN D [Concomitant]
     Indication: VITAMIN D DECREASED
     Route: 048

REACTIONS (1)
  - DRY MOUTH [None]
